FAERS Safety Report 8166618-8 (Version None)
Quarter: 2012Q1

REPORT INFORMATION
  Report Type: 
  Country: None (occurrence: None)
  Receive Date: 20120227
  Receipt Date: 20120213
  Transmission Date: 20120608
  Serious: Yes (Death, Hospitalization, Other)
  Sender: FDA-Public Use
  Company Number: GB-CELGENEUS-167-21880-12021531

PATIENT
  Age: 71 Year
  Sex: Female

DRUGS (2)
  1. REVLIMID [Suspect]
     Route: 048
  2. REVLIMID [Suspect]
     Dosage: REDUCED
     Route: 048

REACTIONS (5)
  - SYNCOPE [None]
  - CARDIAC DISORDER [None]
  - VENTRICULAR FAILURE [None]
  - FATIGUE [None]
  - SEPSIS [None]
